FAERS Safety Report 5958869-5 (Version None)
Quarter: 2008Q4

REPORT INFORMATION
  Report Type: 
  Country: None (occurrence: None)
  Receive Date: 20081119
  Receipt Date: 20081110
  Transmission Date: 20090506
  Serious: Yes (Other)
  Sender: FDA-Public Use
  Company Number: DE-AMGEN-UK318097

PATIENT
  Sex: Female

DRUGS (1)
  1. KINERET [Suspect]

REACTIONS (1)
  - SKIN HAEMORRHAGE [None]
